FAERS Safety Report 4485414-6 (Version None)
Quarter: 2004Q4

REPORT INFORMATION
  Report Type: 
  Country: None (occurrence: None)
  Receive Date: 20041026
  Receipt Date: 20040721
  Transmission Date: 20050328
  Serious: Yes (Hospitalization)
  Sender: FDA-Public Use
  Company Number: FI-ABBOTT-04P-055-0268353-00

PATIENT
  Age: 61 Year
  Sex: Male

DRUGS (15)
  1. KALETRA [Suspect]
     Indication: HIV INFECTION
     Dosage: 800/200 MG
     Route: 048
     Dates: start: 20030710, end: 20040318
  2. SERETIDE MITE [Interacting]
     Indication: ASTHMA
     Dosage: 50/500 1X2
     Route: 055
     Dates: start: 20031113
  3. PREDNISONE [Suspect]
     Indication: SARCOIDOSIS
     Route: 048
     Dates: start: 20030902, end: 20030907
  4. PREDNISONE [Suspect]
     Dates: start: 20030907, end: 20030911
  5. PREDNISONE [Suspect]
     Dates: start: 20030911, end: 20030926
  6. PREDNISONE [Suspect]
     Dates: start: 20030926
  7. PREDNISONE [Suspect]
     Dates: start: 20031215
  8. PREDNISONE [Suspect]
     Dates: start: 20040301
  9. PREDNISONE [Suspect]
     Dates: end: 20040502
  10. ZIDOVUDINE W/LAMIVUDINE [Concomitant]
     Indication: HIV INFECTION
     Route: 048
     Dates: start: 20010101
  11. FUZEON [Concomitant]
     Indication: DRUG USE FOR UNKNOWN INDICATION
  12. CALCICHEW-D3 [Concomitant]
     Indication: DRUG USE FOR UNKNOWN INDICATION
  13. TERBUTALINE SULFATE [Concomitant]
     Indication: DRUG USE FOR UNKNOWN INDICATION
  14. ZOPICLONE [Concomitant]
     Indication: DRUG USE FOR UNKNOWN INDICATION
  15. ENFUVIRTIDE [Concomitant]
     Indication: DRUG USE FOR UNKNOWN INDICATION
     Dates: start: 20040318

REACTIONS (10)
  - ALANINE AMINOTRANSFERASE INCREASED [None]
  - ASTHMA [None]
  - BACK PAIN [None]
  - CONDITION AGGRAVATED [None]
  - DRUG INTERACTION [None]
  - NAUSEA [None]
  - ORAL CANDIDIASIS [None]
  - OSTEOPOROSIS [None]
  - SARCOIDOSIS [None]
  - SPINAL COMPRESSION FRACTURE [None]
